FAERS Safety Report 8456626-1 (Version None)
Quarter: 2012Q2

REPORT INFORMATION
  Report Type: 
  Country: None (occurrence: None)
  Receive Date: 20120621
  Receipt Date: 20120606
  Transmission Date: 20120825
  Serious: Yes (Hospitalization)
  Sender: FDA-Public Use
  Company Number: US-ROCHE-1080523

PATIENT

DRUGS (5)
  1. DACARBAZINE [Suspect]
     Indication: HODGKIN'S DISEASE
  2. MABTHERA [Suspect]
     Indication: HODGKIN'S DISEASE
     Dosage: ON DAYS 1, 8, 15, 22 OF CYCLE 1 AND ON DAY 1 OF CYCLES 2, 4, 6
  3. VINBLASTINE SULFATE [Suspect]
     Indication: HODGKIN'S DISEASE
  4. DOXORUBICIN HCL [Suspect]
     Indication: HODGKIN'S DISEASE
  5. BLEOMYCIN SULFATE [Suspect]
     Indication: HODGKIN'S DISEASE

REACTIONS (4)
  - PULMONARY TOXICITY [None]
  - THROMBOSIS [None]
  - FEBRILE NEUTROPENIA [None]
  - INFECTION [None]
